FAERS Safety Report 21302899 (Version 1)
Quarter: 2022Q3

REPORT INFORMATION
  Report Type: Other
  Country: US (occurrence: US)
  Receive Date: 20220907
  Receipt Date: 20220907
  Transmission Date: 20221027
  Serious: No
  Sender: FDA-Public Use
  Company Number: None

PATIENT

DRUGS (1)
  1. CARISOPRODOL [Suspect]
     Active Substance: CARISOPRODOL
     Indication: Analgesic therapy
     Route: 065

REACTIONS (5)
  - Drug ineffective [Unknown]
  - Somnolence [Unknown]
  - Intentional overdose [Unknown]
  - Wrong technique in product usage process [Unknown]
  - Suspected product quality issue [Unknown]
